FAERS Safety Report 16215073 (Version 1)
Quarter: 2019Q2

REPORT INFORMATION
  Report Type: Spontaneous
  Country: BR (occurrence: BR)
  Receive Date: 20190419
  Receipt Date: 20190419
  Transmission Date: 20190711
  Serious: Yes (Other)
  Sender: FDA-Public Use
  Company Number: BR-SUN PHARMACEUTICAL INDUSTRIES LTD-2019R1-205684

PATIENT
  Age: 55 Year
  Sex: Male

DRUGS (5)
  1. PREDNISONE. [Suspect]
     Active Substance: PREDNISONE
     Indication: PAIN
  2. PREDNISONE. [Suspect]
     Active Substance: PREDNISONE
     Indication: SKIN LESION
     Dosage: UNK
     Route: 065
  3. THALIDOMIDE [Concomitant]
     Active Substance: THALIDOMIDE
     Indication: SKIN LESION
     Dosage: UNK
     Route: 065
  4. THALIDOMIDE [Concomitant]
     Active Substance: THALIDOMIDE
     Indication: PAIN
  5. THALIDOMIDE [Concomitant]
     Active Substance: THALIDOMIDE
     Indication: LEPROSY

REACTIONS (2)
  - Osteomyelitis chronic [Unknown]
  - Condition aggravated [Unknown]
